FAERS Safety Report 4427773-6 (Version None)
Quarter: 2004Q3

REPORT INFORMATION
  Report Type: 
  Country: None (occurrence: None)
  Receive Date: 20040812
  Receipt Date: 20040728
  Transmission Date: 20050211
  Serious: Yes (Hospitalization)
  Sender: FDA-Public Use
  Company Number: 04P-163-0268316-00

PATIENT
  Age: 54 Year
  Sex: Female
  Weight: 86.1834 kg

DRUGS (3)
  1. HUMIRA [Suspect]
     Indication: RHEUMATOID ARTHRITIS
     Dosage: SEE IMAGE
     Route: 058
     Dates: start: 20040412, end: 20040510
  2. HUMIRA [Suspect]
     Indication: RHEUMATOID ARTHRITIS
     Dosage: SEE IMAGE
     Route: 058
     Dates: start: 20040623, end: 20040623
  3. LEFLUNOMIDE [Concomitant]

REACTIONS (9)
  - CHOLELITHIASIS [None]
  - DIARRHOEA [None]
  - HEADACHE [None]
  - INJECTION SITE PAIN [None]
  - PANCREATITIS [None]
  - POST PROCEDURAL COMPLICATION [None]
  - SINUSITIS [None]
  - UMBILICAL HERNIA [None]
  - VOMITING [None]
